FAERS Safety Report 4379956-1 (Version None)
Quarter: 2004Q2

REPORT INFORMATION
  Report Type: 
  Country: None (occurrence: None)
  Receive Date: 20040614
  Receipt Date: 20040601
  Transmission Date: 20050107
  Serious: Yes (Hospitalization)
  Sender: FDA-Public Use
  Company Number: 04P-062-0262672-00

PATIENT
  Sex: Male

DRUGS (4)
  1. KALETRA [Suspect]
     Indication: HIV INFECTION
     Dosage: PER ORAL
     Route: 048
     Dates: start: 20031201
  2. BACTRIM [Suspect]
     Indication: PNEUMOCYSTIS CARINII PNEUMONIA
     Dosage: PER ORAL
     Route: 048
     Dates: start: 20031201, end: 20040101
  3. TENOFOVIR [Concomitant]
  4. LAMIVUDINE [Concomitant]

REACTIONS (3)
  - ANAEMIA [None]
  - APLASIA PURE RED CELL [None]
  - DYSPNOEA [None]
